FAERS Safety Report 10924859 (Version 2)
Quarter: 2015Q2

REPORT INFORMATION
  Report Type: Spontaneous
  Country: US (occurrence: US)
  Receive Date: 20150318
  Receipt Date: 20150524
  Transmission Date: 20150821
  Serious: No
  Sender: FDA-Public Use
  Company Number: US-JNJFOC-20130802439

PATIENT
  Age: 37 Year
  Sex: Female
  Weight: 90.72 kg

DRUGS (2)
  1. KETOCONAZOLE 2% [Suspect]
     Active Substance: KETOCONAZOLE
     Indication: PRURITUS
     Route: 065
     Dates: start: 20130805
  2. KETOCONAZOLE 2% [Suspect]
     Active Substance: KETOCONAZOLE
     Indication: ERYTHEMA
     Route: 065
     Dates: start: 20130805

REACTIONS (3)
  - Cough [Not Recovered/Not Resolved]
  - Off label use [Unknown]
  - Throat irritation [Not Recovered/Not Resolved]

NARRATIVE: CASE EVENT DATE: 20130805
